FAERS Safety Report 4317451-6 (Version None)
Quarter: 2004Q1

REPORT INFORMATION
  Report Type: 
  Country: None (occurrence: None)
  Receive Date: 20040312
  Receipt Date: 20040227
  Transmission Date: 20041129
  Serious: Yes (Hospitalization)
  Sender: FDA-Public Use
  Company Number: 2004-NL-00028NL

PATIENT
  Age: 64 Year
  Sex: Female

DRUGS (3)
  1. MICARDIS [Suspect]
     Indication: HYPERTENSION
     Dosage: 40 MG (40 MG,1 IN 1 D) PO
     Route: 048
     Dates: start: 20040119, end: 20040215
  2. AMILORIDE-HYDROCHLOROTHIAZIDE- (AMILORIDE W/HYDROCHLOROTHIAZIDE) (TA) [Concomitant]
  3. DIURETICS (DIURETICS) [Concomitant]

REACTIONS (1)
  - SUPRAVENTRICULAR TACHYCARDIA [None]
